FAERS Safety Report 7238210-0 (Version None)
Quarter: 2011Q1

REPORT INFORMATION
  Report Type: 
  Country: None (occurrence: None)
  Receive Date: 20110121
  Receipt Date: 20110118
  Transmission Date: 20110831
  Serious: No
  Sender: FDA-Public Use
  Company Number: US-PFIZER INC-2011012696

PATIENT
  Sex: Female
  Weight: 72.6 kg

DRUGS (12)
  1. ATENOLOL [Concomitant]
     Dosage: 25 MG, 2X/DAY
     Route: 048
  2. SYNTHROID [Concomitant]
     Indication: THYROID DISORDER
     Dosage: 75 UG, 1X/DAY
     Route: 048
  3. CRESTOR [Concomitant]
     Dosage: 10 MG, 1X/DAY
     Route: 048
  4. PREMARIN [Suspect]
     Indication: VULVOVAGINAL DRYNESS
     Dosage: 1 G, 2X/WEEK
     Dates: start: 20101201
  5. ASPIRIN [Concomitant]
     Dosage: 325 MG, 1X/DAY
     Route: 048
  6. VITAMIN B-12 [Concomitant]
     Dosage: 1000 MG, 1X/DAY
  7. PREVACID [Concomitant]
     Dosage: 10 MG, 1X/DAY
  8. VASOTEC [Concomitant]
     Dosage: 10 MG, 1X/DAY
     Route: 048
  9. CENTRUM SILVER [Concomitant]
     Dosage: UNK
  10. VITAMIN E [Concomitant]
     Dosage: 400 MG, 1X/DAY
     Route: 048
  11. XANAX [Concomitant]
     Dosage: 10 MG, 1X/DAY
     Route: 048
  12. VITAMIN D [Concomitant]
     Dosage: 2000 IU, 1X/DAY
     Route: 048

REACTIONS (1)
  - MUSCLE SPASMS [None]
